FAERS Safety Report 9584776 (Version 1)
Quarter: 2013Q4

REPORT INFORMATION
  Report Type: Spontaneous
  Country: US (occurrence: US)
  Receive Date: 20131002
  Receipt Date: 20131002
  Transmission Date: 20140711
  Serious: No
  Sender: FDA-Public Use
  Company Number: US-AMGEN-USASP2013054971

PATIENT
  Age: 74 Year
  Sex: Female

DRUGS (9)
  1. ENBREL [Suspect]
     Indication: PRODUCT USED FOR UNKNOWN INDICATION
     Dosage: 50 MG, QWK
     Route: 058
  2. METHOTREXATE [Concomitant]
     Dosage: 2.5 MG, UNK
     Route: 065
  3. LORAZEPAM [Concomitant]
     Dosage: 1 MG, UNK
     Route: 065
  4. PREDNISONE [Concomitant]
     Dosage: 2.5 MG, UNK
     Route: 065
  5. ENALAPRIL [Concomitant]
     Dosage: 20 MG, UNK
     Route: 065
  6. FOLIC ACID [Concomitant]
     Dosage: 1 MG, UNK
     Route: 065
  7. OMEPRAZOLE [Concomitant]
     Dosage: 20 MG, UNK
     Route: 065
  8. FISH OIL [Concomitant]
     Dosage: UNK
     Route: 065
  9. CITRACAL + D                       /01438101/ [Concomitant]
     Dosage: UNK
     Route: 065

REACTIONS (1)
  - Therapeutic response decreased [Unknown]
